FAERS Safety Report 7157502-7 (Version None)
Quarter: 2010Q4

REPORT INFORMATION
  Report Type: 
  Country: None (occurrence: None)
  Receive Date: 20101130
  Receipt Date: 20101117
  Transmission Date: 20110411
  Serious: Yes (Other)
  Sender: FDA-Public Use
  Company Number: CIP10002798

PATIENT
  Age: 66 Year
  Sex: Female
  Weight: 65 kg

DRUGS (2)
  1. ACTONEL [Suspect]
     Indication: OSTEOPOROSIS
     Dosage: 5 MG DAILY, ORAL
     Route: 048
     Dates: start: 19960101, end: 20100101
  2. NEBIVOLOL HCL [Concomitant]

REACTIONS (3)
  - GASTRIC CANCER [None]
  - GASTRIC NEOPLASM [None]
  - GASTRIC ULCER [None]
